FAERS Safety Report 13292773 (Version 3)
Quarter: 2017Q2

REPORT INFORMATION
  Report Type: Report from Study
  Country: US (occurrence: US)
  Receive Date: 20170303
  Receipt Date: 20170414
  Transmission Date: 20170830
  Serious: Yes (Other)
  Sender: FDA-Public Use
  Company Number: US-SAOL THERAPEUTICS-2017SAO00403

PATIENT
  Age: 63 Year
  Sex: Female

DRUGS (6)
  1. COMPOUNDED BACLOFEN [Suspect]
     Active Substance: BACLOFEN
     Dosage: 27.995 ?G, \DAY
     Route: 037
     Dates: start: 20141107
  2. DILAUDID [Suspect]
     Active Substance: HYDROMORPHONE HYDROCHLORIDE
     Dosage: 10.001 MG, \DAY
     Route: 037
     Dates: start: 20131220
  3. COMPOUNDED BACLOFEN [Suspect]
     Active Substance: BACLOFEN
     Dosage: 26.670 ?G, \DAY
     Route: 037
     Dates: start: 20131220
  4. CLONIDINE. [Suspect]
     Active Substance: CLONIDINE
     Dosage: 46.672 ?G, \DAY
     Route: 037
     Dates: start: 20131220
  5. DILAUDID [Suspect]
     Active Substance: HYDROMORPHONE HYDROCHLORIDE
     Dosage: 10.498 MG, \DAY
     Route: 037
     Dates: start: 20141107
  6. CLONIDINE. [Suspect]
     Active Substance: CLONIDINE
     Dosage: 48.992 ?G, \DAY
     Route: 037
     Dates: start: 20141107

REACTIONS (3)
  - Implant site pain [Recovered/Resolved]
  - Implant site haematoma [Recovered/Resolved]
  - Therapy non-responder [Recovered/Resolved]

NARRATIVE: CASE EVENT DATE: 20150409
